FAERS Safety Report 11715139 (Version 1)
Quarter: 2015Q4

REPORT INFORMATION
  Report Type: Spontaneous
  Country: US (occurrence: US)
  Receive Date: 20151109
  Receipt Date: 20151109
  Transmission Date: 20160304
  Serious: Yes (Hospitalization)
  Sender: FDA-Public Use
  Company Number: US-FRESENIUS KABI-FK201505679

PATIENT
  Age: 14 Year
  Sex: Male
  Weight: 46.3 kg

DRUGS (25)
  1. SOLU-MEDROL [Concomitant]
     Active Substance: METHYLPREDNISOLONE SODIUM SUCCINATE
     Dates: start: 20150909, end: 20150909
  2. DOLOPHINE [Concomitant]
     Active Substance: METHADONE HYDROCHLORIDE
     Dates: start: 20150903
  3. SENOKOT [Concomitant]
     Active Substance: SENNOSIDES
     Dates: start: 20150902, end: 20150904
  4. DILAUDID [Concomitant]
     Active Substance: HYDROMORPHONE HYDROCHLORIDE
     Dates: start: 20150902, end: 20150903
  5. BACTRIM [Concomitant]
     Active Substance: SULFAMETHOXAZOLE\TRIMETHOPRIM
     Dates: start: 20150902
  6. OMNIPAQUE [Concomitant]
     Active Substance: IOHEXOL
     Dates: start: 20150912, end: 20150912
  7. LEUCOVORIN CALCIUM. [Concomitant]
     Active Substance: LEUCOVORIN CALCIUM
     Dates: start: 20150902
  8. DOTAREM [Concomitant]
     Active Substance: GADOTERATE MEGLUMINE
     Dates: start: 20150904, end: 20150904
  9. SERTRALINE HYDROCHLORIDE. [Concomitant]
     Active Substance: SERTRALINE HYDROCHLORIDE
     Dates: start: 20150902
  10. METHOTREXATE (MANUFACTURER UNKNOWN) [Suspect]
     Active Substance: METHOTREXATE
     Indication: NERVOUS SYSTEM DISORDER
     Route: 037
     Dates: start: 20150910, end: 20150910
  11. CYTARABINE. [Suspect]
     Active Substance: CYTARABINE
     Indication: NERVOUS SYSTEM DISORDER
     Route: 037
     Dates: start: 20150910, end: 20150910
  12. BENADRYL [Concomitant]
     Active Substance: DIPHENHYDRAMINE HYDROCHLORIDE
     Dates: start: 20150903
  13. TRANSDERM SCOP [Concomitant]
     Active Substance: SCOPOLAMINE
     Dates: start: 20150903, end: 20150904
  14. VISTARIL [Concomitant]
     Active Substance: HYDROXYZINE PAMOATE
     Dates: start: 20150902, end: 20150904
  15. KYTRIL [Concomitant]
     Active Substance: GRANISETRON HYDROCHLORIDE
     Dates: start: 20150903, end: 20150904
  16. HEPARIN SODIUM. [Concomitant]
     Active Substance: HEPARIN SODIUM
     Dates: start: 20150902
  17. MORPHINE SULFATE. [Concomitant]
     Active Substance: MORPHINE SULFATE
     Dates: start: 20150902
  18. HYDROCORTISONE SODIUM SUCCINATE [Suspect]
     Active Substance: HYDROCORTISONE SODIUM SUCCINATE
     Indication: NERVOUS SYSTEM DISORDER
     Route: 037
     Dates: start: 20150910, end: 20150910
  19. MARINOL [Concomitant]
     Active Substance: DRONABINOL
     Dates: start: 20150902, end: 20150904
  20. TYLENOL [Concomitant]
     Active Substance: ACETAMINOPHEN
     Dates: start: 20150902
  21. CELEBREX [Concomitant]
     Active Substance: CELECOXIB
     Dates: start: 20150902, end: 20150904
  22. GEMTUZUMAB OZOGAMICIN [Suspect]
     Active Substance: GEMTUZUMAB OZOGAMICIN
     Indication: ACUTE MYELOID LEUKAEMIA RECURRENT
     Route: 042
     Dates: start: 20150909, end: 20150909
  23. ATIVAN [Concomitant]
     Active Substance: LORAZEPAM
     Dates: start: 20150902
  24. PREVACID [Concomitant]
     Active Substance: LANSOPRAZOLE
     Dates: start: 20150903, end: 20150904
  25. LEUCOVORIN. [Concomitant]
     Active Substance: LEUCOVORIN
     Dates: start: 20150831

REACTIONS (1)
  - Seizure [Recovered/Resolved]

NARRATIVE: CASE EVENT DATE: 20150913
